FAERS Safety Report 15097489 (Version 2)
Quarter: 2018Q3

REPORT INFORMATION
  Report Type: Spontaneous
  Country: JP (occurrence: JP)
  Receive Date: 20180702
  Receipt Date: 20180905
  Transmission Date: 20181010
  Serious: Yes (Other)
  Sender: FDA-Public Use
  Company Number: JP-GLAXOSMITHKLINE-JP2018JPN113171

PATIENT
  Age: 80 Year
  Sex: Male

DRUGS (1)
  1. ZOVIRAX [Suspect]
     Active Substance: ACYCLOVIR
     Indication: MENINGOENCEPHALITIS HERPETIC
     Dosage: 1875 MG, UNK
     Route: 041

REACTIONS (4)
  - Altered state of consciousness [Recovered/Resolved]
  - Toxic encephalopathy [Recovering/Resolving]
  - Acute kidney injury [Recovering/Resolving]
  - Disorientation [Recovered/Resolved]
